FAERS Safety Report 6040588-0 (Version None)
Quarter: 2009Q1

REPORT INFORMATION
  Report Type: 
  Country: None (occurrence: None)
  Receive Date: 20090116
  Receipt Date: 20080409
  Transmission Date: 20090719
  Serious: No
  Sender: FDA-Public Use
  Company Number: US-BRISTOL-MYERS SQUIBB COMPANY-14147003

PATIENT

DRUGS (1)
  1. ABILIFY [Suspect]
     Dosage: STARTED ON 30MG AND NOW ON 7.5MG OVER THE LAST 2 1/2 YEARS.

REACTIONS (1)
  - DYSKINESIA [None]
